FAERS Safety Report 9745427 (Version 3)
Quarter: 2014Q1

REPORT INFORMATION
  Report Type: Spontaneous
  Country: US (occurrence: US)
  Receive Date: 20131211
  Receipt Date: 20140206
  Transmission Date: 20141002
  Serious: Yes (Other)
  Sender: FDA-Public Use
  Company Number: US-SA-2013SA128727

PATIENT
  Age: 76 Year
  Sex: Female
  Weight: 56.65 kg

DRUGS (5)
  1. AMARYL [Suspect]
     Indication: TYPE 2 DIABETES MELLITUS
     Route: 048
     Dates: start: 20080228, end: 20130607
  2. PRILOSEC [Concomitant]
     Indication: GASTROOESOPHAGEAL REFLUX DISEASE
     Route: 065
     Dates: start: 1990
  3. LIPITOR [Concomitant]
     Indication: CARDIAC OPERATION
     Route: 065
     Dates: start: 20050505
  4. CENTRUM SILVER [Concomitant]
  5. ASPIRIN [Concomitant]

REACTIONS (8)
  - Pancreatitis [Unknown]
  - Lipase increased [Recovered/Resolved]
  - Gallbladder disorder [Unknown]
  - Abdominal pain upper [Recovered/Resolved]
  - Aphagia [Unknown]
  - Weight decreased [Unknown]
  - Diarrhoea [Unknown]
  - Blood glucose increased [Recovered/Resolved]
